FAERS Safety Report 8461350 (Version 2)
Quarter: 2012Q4

REPORT INFORMATION
  Report Type: 
  Country: US (occurrence: US)
  Receive Date: 20120315
  Receipt Date: 20121026
  Transmission Date: 20130627
  Serious: Yes (Other)
  Sender: FDA-Public Use
  Company Number: US-US-EMD SERONO, INC.-7117649

PATIENT
  Age: 50 Year
  Sex: Female

DRUGS (1)
  1. REBIF [Suspect]
     Indication: PRODUCT USED FOR UNKNOWN INDICATION
     Route: 058
     Dates: start: 20110906

REACTIONS (5)
  - Meniscus injury [Unknown]
  - Lower limb fracture [Unknown]
  - Tremor [Recovered/Resolved]
  - Feeling abnormal [Recovered/Resolved]
  - Feeling cold [Recovered/Resolved]
